FAERS Safety Report 10082980 (Version 12)
Quarter: 2016Q4

REPORT INFORMATION
  Report Type: Report from Study
  Country: DE (occurrence: DE)
  Receive Date: 20140417
  Receipt Date: 20161124
  Transmission Date: 20170206
  Serious: Yes (Hospitalization)
  Sender: FDA-Public Use
  Company Number: DE-ROCHE-1376545

PATIENT
  Age: 70 Year
  Sex: Male
  Weight: 94 kg

DRUGS (18)
  1. RAMIPRIL. [Concomitant]
     Active Substance: RAMIPRIL
     Indication: HYPERTENSION
     Route: 048
     Dates: start: 20130101
  2. FOLSAN [Concomitant]
     Active Substance: FOLIC ACID
     Route: 048
     Dates: start: 20140110
  3. OXYGESIC [Concomitant]
     Active Substance: OXYCODONE
     Indication: PAIN
     Dosage: AS NEEDED
     Route: 048
     Dates: start: 20140110
  4. BEVACIZUMAB [Suspect]
     Active Substance: BEVACIZUMAB
     Route: 042
     Dates: start: 20140506, end: 20140506
  5. PEMETREXED [Suspect]
     Active Substance: PEMETREXED
     Route: 042
     Dates: start: 20140408, end: 20140408
  6. ZOLPIDEM [Concomitant]
     Active Substance: ZOLPIDEM\ZOLPIDEM TARTRATE
     Route: 065
     Dates: start: 20140327
  7. PREDNISOLON [Concomitant]
     Active Substance: PREDNISOLONE
     Route: 065
     Dates: start: 20140327
  8. OMEPRAZOLE. [Concomitant]
     Active Substance: OMEPRAZOLE
     Indication: GASTRITIS
     Route: 048
     Dates: start: 20140402
  9. BEVACIZUMAB [Suspect]
     Active Substance: BEVACIZUMAB
     Indication: LUNG NEOPLASM MALIGNANT
     Route: 042
     Dates: start: 20140318
  10. BEVACIZUMAB [Suspect]
     Active Substance: BEVACIZUMAB
     Route: 042
     Dates: start: 20140408, end: 20140408
  11. CARBOPLATIN. [Suspect]
     Active Substance: CARBOPLATIN
     Dosage: 5 AUC
     Route: 042
     Dates: start: 20140408, end: 20140408
  12. NOVALGIN [Concomitant]
     Active Substance: METAMIZOLE SODIUM
     Indication: PAIN
     Dosage: AS NEEDED
     Route: 048
     Dates: start: 20140110
  13. PEMETREXED [Suspect]
     Active Substance: PEMETREXED
     Indication: LUNG NEOPLASM MALIGNANT
     Route: 042
     Dates: start: 20140318
  14. PEMETREXED [Suspect]
     Active Substance: PEMETREXED
     Route: 042
     Dates: start: 20140506, end: 20140506
  15. CARBOPLATIN. [Suspect]
     Active Substance: CARBOPLATIN
     Indication: LUNG NEOPLASM MALIGNANT
     Dosage: 5 AUC
     Route: 042
     Dates: start: 20140318
  16. ALLOPURINOL. [Concomitant]
     Active Substance: ALLOPURINOL
     Indication: HYPERURICAEMIA
     Route: 048
     Dates: start: 20110101
  17. CARBOPLATIN. [Suspect]
     Active Substance: CARBOPLATIN
     Route: 042
     Dates: start: 20140506, end: 20140506
  18. TEPILTA [Concomitant]
     Active Substance: ALUMINUM HYDROXIDE\MAGNESIUM OXIDE\OXETHAZAINE
     Indication: GASTRITIS
     Dosage: 10 ML
     Route: 048
     Dates: start: 20140328

REACTIONS (8)
  - Fluid intake reduced [Recovered/Resolved]
  - Hypophagia [Recovered/Resolved]
  - Odynophagia [Not Recovered/Not Resolved]
  - Erosive duodenitis [Recovering/Resolving]
  - Erosive oesophagitis [Recovering/Resolving]
  - Dysphagia [Recovered/Resolved]
  - Mucosal inflammation [Recovered/Resolved]
  - Pancytopenia [Recovered/Resolved]

NARRATIVE: CASE EVENT DATE: 20140327
